FAERS Safety Report 18578688 (Version 1)
Quarter: 2020Q4

REPORT INFORMATION
  Report Type: Spontaneous
  Country: DE (occurrence: DE)
  Receive Date: 20201204
  Receipt Date: 20201204
  Transmission Date: 20210114
  Serious: Yes (Hospitalization, Other)
  Sender: FDA-Public Use
  Company Number: DE-AUROBINDO-AUR-APL-2020-059037

PATIENT
  Age: 54 Year
  Sex: Female

DRUGS (3)
  1. CLOPIDOGREL [Suspect]
     Active Substance: CLOPIDOGREL BISULFATE
     Indication: TRANSIENT ISCHAEMIC ATTACK
     Dosage: UNK
     Route: 065
  2. COPAXONE [Suspect]
     Active Substance: GLATIRAMER ACETATE
     Indication: MULTIPLE SCLEROSIS
     Dosage: 20 MILLIGRAM DAILY;
     Route: 065
     Dates: start: 20150201
  3. ACETYLSALICYLIC ACID [Suspect]
     Active Substance: ASPIRIN
     Indication: TRANSIENT ISCHAEMIC ATTACK
     Dosage: UNK
     Route: 065

REACTIONS (17)
  - Abnormal sensation in eye [Unknown]
  - Muscular weakness [Unknown]
  - Facial paralysis [Recovered/Resolved]
  - Vertigo [Recovered/Resolved]
  - Aphasia [Recovered/Resolved]
  - Transient ischaemic attack [Unknown]
  - Multiple sclerosis relapse [Unknown]
  - Dyspepsia [Unknown]
  - Limb discomfort [Unknown]
  - Dysarthria [Recovered/Resolved]
  - Asthenia [Recovered/Resolved]
  - Movement disorder [Recovered/Resolved]
  - Dizziness [Unknown]
  - Abdominal pain upper [Unknown]
  - Gait disturbance [Recovered/Resolved]
  - Hemiparesis [Recovered/Resolved]
  - Mouth swelling [Unknown]

NARRATIVE: CASE EVENT DATE: 202010
